FAERS Safety Report 18322363 (Version 1)
Quarter: 2020Q3

REPORT INFORMATION
  Report Type: Report from Study
  Country: BR (occurrence: BR)
  Receive Date: 20200928
  Receipt Date: 20200928
  Transmission Date: 20201103
  Serious: Yes (Hospitalization)
  Sender: FDA-Public Use
  Company Number: BR-JNJFOC-20200844228

PATIENT
  Age: 39 Year
  Sex: Female
  Weight: 60 kg

DRUGS (2)
  1. REMICADE [Suspect]
     Active Substance: INFLIXIMAB
     Indication: COLITIS ULCERATIVE
     Route: 042
     Dates: start: 202004
  2. REMICADE [Suspect]
     Active Substance: INFLIXIMAB
     Indication: COLITIS

REACTIONS (6)
  - Renal impairment [Unknown]
  - Liver disorder [Unknown]
  - Intestinal haemorrhage [Unknown]
  - Infection [Unknown]
  - Gastrointestinal pain [Not Recovered/Not Resolved]
  - Headache [Not Recovered/Not Resolved]

NARRATIVE: CASE EVENT DATE: 202008
